FAERS Safety Report 5476595-6 (Version None)
Quarter: 2007Q4

REPORT INFORMATION
  Report Type: 
  Country: None (occurrence: None)
  Receive Date: 20071004
  Receipt Date: 20070927
  Transmission Date: 20080405
  Serious: Yes (Other)
  Sender: FDA-Public Use
  Company Number: PHMT2007CA01989

PATIENT

DRUGS (1)
  1. FEMARA [Suspect]
     Dosage: 2.5 MG
     Route: 048

REACTIONS (1)
  - VASCULITIS [None]
